FAERS Safety Report 5238077-6 (Version None)
Quarter: 2007Q1

REPORT INFORMATION
  Report Type: 
  Country: None (occurrence: None)
  Receive Date: 20070215
  Receipt Date: 20070202
  Transmission Date: 20070707
  Serious: Yes (Hospitalization)
  Sender: FDA-Public Use
  Company Number: PHEH2007US01607

PATIENT
  Age: 49 Year
  Sex: Female

DRUGS (4)
  1. METOPROLOL TARTRATE [Suspect]
     Indication: HYPERTENSION
     Dosage: UNK, UNK
  2. LISINOPRIL [Suspect]
     Indication: HYPERTENSION
     Dates: end: 20070119
  3. PLAVIX [Suspect]
  4. HYDROCHLOROTHIAZIDE [Suspect]
     Indication: HYPERTENSION
     Dates: end: 20070119

REACTIONS (1)
  - MYOCARDIAL INFARCTION [None]
